FAERS Safety Report 21819243 (Version 2)
Quarter: 2023Q1

REPORT INFORMATION
  Report Type: Spontaneous
  Country: US (occurrence: US)
  Receive Date: 20230104
  Receipt Date: 20230117
  Transmission Date: 20230418
  Serious: Yes (Other)
  Sender: FDA-Public Use
  Company Number: US-BAUSCHBL-2022BNL003304

PATIENT
  Age: 82 Year
  Sex: Female
  Weight: 78.088 kg

DRUGS (1)
  1. LATANOPROST [Suspect]
     Active Substance: LATANOPROST
     Indication: Glaucoma
     Route: 047

REACTIONS (8)
  - Visual impairment [Unknown]
  - Dysgeusia [Unknown]
  - Impaired driving ability [Unknown]
  - Eye pain [Unknown]
  - Accidental exposure to product [Unknown]
  - Product use issue [Unknown]
  - Product physical consistency issue [Unknown]
  - Product packaging quantity issue [Unknown]
